FAERS Safety Report 25425093 (Version 1)
Quarter: 2025Q2

REPORT INFORMATION
  Report Type: Report from Study
  Country: US (occurrence: US)
  Receive Date: 20250611
  Receipt Date: 20250611
  Transmission Date: 20250716
  Serious: Yes (Other)
  Sender: ABBVIE
  Company Number: US-ABBVIE-5934566

PATIENT
  Age: 50 Year
  Sex: Male

DRUGS (1)
  1. HUMIRA [Suspect]
     Active Substance: ADALIMUMAB
     Indication: Ankylosing spondylitis
     Route: 058
     Dates: start: 20220127

REACTIONS (5)
  - Therapeutic nerve ablation [Recovered/Resolved]
  - Back pain [Not Recovered/Not Resolved]
  - Musculoskeletal discomfort [Unknown]
  - Inflammation [Unknown]
  - Intervertebral disc disorder [Unknown]

NARRATIVE: CASE EVENT DATE: 20220101
